FAERS Safety Report 5875037-6 (Version None)
Quarter: 2008Q3

REPORT INFORMATION
  Report Type: 
  Country: None (occurrence: None)
  Receive Date: 20080904
  Receipt Date: 20080409
  Transmission Date: 20090109
  Serious: Yes (Hospitalization, Disabling)
  Sender: FDA-Public Use
  Company Number: 2008AP000854

PATIENT
  Age: 11 Year
  Sex: Female

DRUGS (1)
  1. CEFPROZIL [Suspect]
     Indication: LOWER RESPIRATORY TRACT INFECTION
     Dosage: 500 MG; BID; PO
     Route: 048
     Dates: start: 20080324, end: 20080101

REACTIONS (3)
  - ABASIA [None]
  - HYPOAESTHESIA [None]
  - PAIN IN EXTREMITY [None]
